FAERS Safety Report 9275768 (Version 1)
Quarter: 2013Q2

REPORT INFORMATION
  Report Type: Spontaneous
  Country: US (occurrence: US)
  Receive Date: 20130507
  Receipt Date: 20130507
  Transmission Date: 20140414
  Serious: Yes (Other)
  Sender: FDA-Public Use
  Company Number: US-JNJFOC-20130502509

PATIENT
  Age: 21 Year
  Sex: Female

DRUGS (4)
  1. TOPAMAX [Suspect]
     Indication: CONVULSION
     Route: 048
  2. PHENOBARBITAL [Suspect]
     Indication: CONVULSION
     Route: 048
  3. VITAMIN C [Concomitant]
     Indication: PREGNANCY
     Route: 065
  4. FERROUS SULFATE [Concomitant]
     Indication: PREGNANCY
     Route: 065

REACTIONS (3)
  - Exposure during pregnancy [Recovered/Resolved]
  - Premature delivery [Not Recovered/Not Resolved]
  - Convulsion [Unknown]
